FAERS Safety Report 5880485-4 (Version None)
Quarter: 2008Q3

REPORT INFORMATION
  Report Type: 
  Country: None (occurrence: None)
  Receive Date: 20080912
  Receipt Date: 20080605
  Transmission Date: 20090109
  Serious: No
  Sender: FDA-Public Use
  Company Number: US-ABBOTT-08P-163-0452849-00

PATIENT
  Sex: Female

DRUGS (3)
  1. HUMIRA [Suspect]
     Indication: ANKYLOSING SPONDYLITIS
     Route: 058
     Dates: start: 20060101
  2. ETANERCEPT [Concomitant]
     Indication: ANKYLOSING SPONDYLITIS
  3. INFLIXIMAB [Concomitant]
     Indication: ANKYLOSING SPONDYLITIS

REACTIONS (1)
  - INJECTION SITE PAIN [None]
